FAERS Safety Report 6118782-X (Version None)
Quarter: 2009Q1

REPORT INFORMATION
  Report Type: 
  Country: None (occurrence: None)
  Receive Date: 20090314
  Receipt Date: 20090226
  Transmission Date: 20090719
  Serious: No
  Sender: FDA-Public Use
  Company Number: US-ABBOTT-09P-163-0559945-00

PATIENT
  Age: 58 Year
  Sex: Female

DRUGS (9)
  1. HUMIRA [Suspect]
     Indication: RHEUMATOID ARTHRITIS
     Route: 058
     Dates: start: 20081120
  2. HUMIRA [Suspect]
     Route: 058
     Dates: start: 20050101
  3. ALPRAZOLAM [Concomitant]
     Indication: DRUG USE FOR UNKNOWN INDICATION
  4. PRILOSEC [Concomitant]
     Indication: DRUG USE FOR UNKNOWN INDICATION
     Route: 048
  5. FLEXERIL [Concomitant]
     Indication: DRUG USE FOR UNKNOWN INDICATION
     Route: 048
  6. PLAQUENIL [Concomitant]
     Indication: RHEUMATOID ARTHRITIS
     Route: 048
  7. METHOTREXATE [Concomitant]
     Indication: RHEUMATOID ARTHRITIS
     Route: 048
  8. 2-UNKNOWN ANTIHYPERTENSIVE MEDS [Concomitant]
     Indication: HYPERTENSION
  9. NITROSTAT [Concomitant]
     Indication: ANGINA PECTORIS
     Route: 060

REACTIONS (7)
  - ANGINA PECTORIS [None]
  - INJECTION SITE EXTRAVASATION [None]
  - INJECTION SITE MASS [None]
  - INJECTION SITE REACTION [None]
  - RASH [None]
  - RETINAL TEAR [None]
  - URTICARIA [None]
